FAERS Safety Report 24905279 (Version 2)
Quarter: 2025Q1

REPORT INFORMATION
  Report Type: Report from Study
  Country: US (occurrence: US)
  Receive Date: 20250130
  Receipt Date: 20250203
  Transmission Date: 20250409
  Serious: No
  Sender: ROCHE
  Company Number: US-ROCHE-3024938

PATIENT
  Age: 55 Year
  Sex: Male

DRUGS (17)
  1. OCREVUS [Suspect]
     Active Substance: OCRELIZUMAB
     Indication: Relapsing multiple sclerosis
     Dosage: THEN 600 MG X 1
     Route: 040
     Dates: start: 202201
  2. FARXIGA [Concomitant]
     Active Substance: DAPAGLIFLOZIN PROPANEDIOL
  3. FOLIC ACID [Concomitant]
     Active Substance: FOLIC ACID
  4. TRINTELLIX [Concomitant]
     Active Substance: VORTIOXETINE HYDROBROMIDE
  5. TIZANIDINE [Concomitant]
     Active Substance: TIZANIDINE
  6. ALPRAZOLAM [Concomitant]
     Active Substance: ALPRAZOLAM
  7. TRAMADOL [Concomitant]
     Active Substance: TRAMADOL
  8. TYLENOL [Concomitant]
     Active Substance: ACETAMINOPHEN
  9. METOPROLOL SUCCINATE [Concomitant]
     Active Substance: METOPROLOL SUCCINATE
  10. CELECOXIB [Concomitant]
     Active Substance: CELECOXIB
  11. GABAPENTIN [Concomitant]
     Active Substance: GABAPENTIN
  12. ALLOPURINOL [Concomitant]
     Active Substance: ALLOPURINOL
  13. ALBUTEROL SULFATE [Concomitant]
     Active Substance: ALBUTEROL SULFATE
  14. AZELASTINA [Concomitant]
  15. LORATADINE [Concomitant]
     Active Substance: LORATADINE
  16. XYZAL [Concomitant]
     Active Substance: LEVOCETIRIZINE DIHYDROCHLORIDE
  17. PREGABALIN [Concomitant]
     Active Substance: PREGABALIN

REACTIONS (6)
  - Heart rate increased [Unknown]
  - Bronchitis [Recovered/Resolved]
  - COVID-19 [Recovered/Resolved]
  - Palpitations [Recovered/Resolved]
  - Influenza [Recovered/Resolved]
  - Heart rate increased [Recovered/Resolved]

NARRATIVE: CASE EVENT DATE: 20230331
